FAERS Safety Report 7894236-5 (Version None)
Quarter: 2011Q4

REPORT INFORMATION
  Report Type: 
  Country: None (occurrence: None)
  Receive Date: 20111104
  Receipt Date: 20111027
  Transmission Date: 20120403
  Serious: Yes (Hospitalization, Other)
  Sender: FDA-Public Use
  Company Number: CA-ABBOTT-11P-028-0847649-00

PATIENT
  Age: 56 Year
  Sex: Female

DRUGS (34)
  1. PREDNISONE [Suspect]
     Route: 048
     Dates: start: 20110726, end: 20110801
  2. METFORMIN HCL [Concomitant]
     Indication: TYPE 2 DIABETES MELLITUS
     Route: 048
     Dates: start: 20090313, end: 20110513
  3. DIABETA [Concomitant]
     Route: 048
     Dates: start: 20110615, end: 20110819
  4. KENALOG [Concomitant]
     Indication: UVEITIS
     Route: 047
     Dates: start: 20090305, end: 20090422
  5. INH [Concomitant]
     Indication: PROPHYLAXIS
     Route: 048
     Dates: start: 20110428, end: 20110814
  6. METFORMIN HCL [Concomitant]
     Route: 048
     Dates: start: 20110819
  7. ACULAR [Concomitant]
     Indication: UVEITIS
     Dosage: 4 GTT
     Route: 047
     Dates: start: 20070701, end: 20110301
  8. MYCOPHENOLATE MOFETIL (CELLCEPT) [Concomitant]
     Route: 048
     Dates: start: 20100924
  9. PREDNISONE [Suspect]
     Route: 048
     Dates: start: 20110512, end: 20110529
  10. PREDNISONE [Suspect]
     Route: 048
     Dates: start: 20110621, end: 20110627
  11. RAMIPRIL [Concomitant]
     Indication: CARDIOVASCULAR EVENT PROPHYLAXIS
     Route: 048
     Dates: start: 20080125
  12. METFORMIN HCL [Concomitant]
     Indication: HYPERGLYCAEMIA
     Route: 048
     Dates: start: 20110513, end: 20110819
  13. CENTRUM [Concomitant]
     Indication: VITAMIN SUPPLEMENTATION
     Route: 048
     Dates: start: 20110531
  14. NEORAL [Concomitant]
     Indication: UVEITIS
     Route: 048
     Dates: start: 20080529
  15. MYCOPHENOLATE MOFETIL (CELLCEPT) [Concomitant]
     Indication: UVEITIS
     Route: 048
     Dates: start: 20070926
  16. PREDNISONE [Suspect]
     Route: 048
     Dates: start: 20110802, end: 20110808
  17. CRESTOR [Concomitant]
     Indication: DYSLIPIDAEMIA
     Route: 048
     Dates: start: 20080125
  18. DIABETA [Concomitant]
     Indication: TYPE 2 DIABETES MELLITUS
     Route: 048
     Dates: start: 20110530, end: 20110614
  19. HUMIRA [Suspect]
     Indication: UVEITIS
     Route: 058
     Dates: start: 20110503, end: 20110804
  20. PREDNISONE [Suspect]
     Indication: UVEITIS
     Route: 048
     Dates: start: 20110504, end: 20110511
  21. PREDNISONE [Suspect]
     Route: 048
     Dates: start: 20110614, end: 20110620
  22. PREDNISONE [Suspect]
     Route: 048
     Dates: start: 20110628, end: 20110704
  23. ASAPHENC [Concomitant]
     Indication: CARDIOVASCULAR EVENT PROPHYLAXIS
     Route: 048
     Dates: start: 20080125
  24. PREDNISONE [Suspect]
     Route: 048
     Dates: start: 20110705, end: 20110711
  25. PREDNISONE [Suspect]
     Route: 048
     Dates: start: 20110719, end: 20110725
  26. SEPTRA DS [Concomitant]
     Indication: URINARY TRACT INFECTION
     Route: 048
     Dates: start: 20110603, end: 20110613
  27. OMEPRAZOLE [Concomitant]
     Indication: ABDOMINAL DISCOMFORT
  28. PREDNISONE [Suspect]
     Route: 048
     Dates: start: 20110530, end: 20110613
  29. PREDNISONE [Suspect]
     Route: 048
     Dates: start: 20110712, end: 20110718
  30. PREDNISONE [Suspect]
     Route: 048
     Dates: start: 20110809, end: 20110814
  31. OMEPRAZOLE [Concomitant]
     Indication: PROPHYLAXIS
     Route: 048
     Dates: start: 20080516, end: 20110818
  32. DIABETA [Concomitant]
     Indication: HYPERGLYCAEMIA
     Route: 048
     Dates: start: 20110513, end: 20110529
  33. PYRIDOXINE HCL [Concomitant]
     Indication: ANTIBIOTIC PROPHYLAXIS
     Route: 048
     Dates: start: 20110531, end: 20110814
  34. IMURAN [Concomitant]
     Indication: UVEITIS
     Route: 048
     Dates: start: 20070905, end: 20070909

REACTIONS (1)
  - LUPUS-LIKE SYNDROME [None]
